FAERS Safety Report 8509168 (Version 5)
Quarter: 2013Q2

REPORT INFORMATION
  Report Type: Spontaneous
  Country: US (occurrence: US)
  Receive Date: 20120412
  Receipt Date: 20130618
  Transmission Date: 20140414
  Serious: Yes (Hospitalization)
  Sender: FDA-Public Use
  Company Number: US-ASTRAZENECA-2011SE42574

PATIENT
  Age: 50 Year
  Sex: Female
  Weight: 91.6 kg

DRUGS (24)
  1. NEXIUM [Suspect]
     Indication: GASTROOESOPHAGEAL REFLUX DISEASE
     Route: 048
     Dates: start: 2001, end: 201107
  2. NEXIUM [Suspect]
     Indication: GASTROOESOPHAGEAL REFLUX DISEASE
     Route: 048
     Dates: start: 2001, end: 201107
  3. NEXIUM [Suspect]
     Indication: GASTROOESOPHAGEAL REFLUX DISEASE
     Route: 048
     Dates: start: 200611, end: 20110705
  4. NEXIUM [Suspect]
     Indication: GASTROOESOPHAGEAL REFLUX DISEASE
     Route: 048
     Dates: start: 200611, end: 20110705
  5. ACETAMINOPHEN [Concomitant]
     Indication: HEADACHE
  6. ALENDRONATE [Concomitant]
     Route: 048
  7. BUPROPION HCL [Concomitant]
     Route: 048
  8. BENZONATATE [Concomitant]
     Route: 048
  9. FAMOTIDINE [Concomitant]
     Route: 048
  10. MELOXICAM [Concomitant]
     Route: 048
  11. PREGABALIN [Concomitant]
     Route: 048
  12. SIMVASTATIN [Concomitant]
     Route: 048
  13. SOLIFENACIN [Concomitant]
     Route: 048
  14. TOPIRAMATE [Concomitant]
     Route: 048
  15. TRAMADOL [Concomitant]
     Route: 048
  16. VERAPAMIL [Concomitant]
     Route: 048
  17. LYRICA [Concomitant]
  18. FIORICET [Concomitant]
  19. BACLOFEN [Concomitant]
  20. TOPOMAX [Concomitant]
  21. VESICARE [Concomitant]
  22. SPIRIVA [Concomitant]
  23. PREDNISONE [Concomitant]
     Route: 048
  24. METHYLPREDNISOLONE [Concomitant]

REACTIONS (13)
  - Bronchopneumonia [Unknown]
  - Osteoporosis [Unknown]
  - Chronic obstructive pulmonary disease [Unknown]
  - Multiple fractures [Unknown]
  - Emotional distress [Unknown]
  - Nervous system disorder [Unknown]
  - Arthritis [Unknown]
  - Cataract [Unknown]
  - Bladder disorder [Unknown]
  - Cardiac disorder [Unknown]
  - Osteopenia [Unknown]
  - Osteoarthritis [Unknown]
  - Depression [Unknown]
